FAERS Safety Report 5102123-0 (Version None)
Quarter: 2006Q3

REPORT INFORMATION
  Report Type: 
  Country: None (occurrence: None)
  Receive Date: 20060911
  Receipt Date: 20060504
  Transmission Date: 20061208
  Serious: Yes (Hospitalization)
  Sender: FDA-Public Use
  Company Number: MX-MERCK-0605MEX00011

PATIENT
  Age: 74 Year
  Sex: Female
  Weight: 72 kg

DRUGS (6)
  1. FOSAMAX [Suspect]
     Indication: OSTEOPOROSIS
     Route: 048
     Dates: start: 20060401, end: 20060511
  2. FOSAMAX [Suspect]
     Route: 048
     Dates: start: 20060501, end: 20060501
  3. OMEPRAZOLE [Concomitant]
     Indication: GASTRITIS
     Route: 048
     Dates: start: 20050101
  4. LOSARTAN POTASSIUM [Concomitant]
     Indication: HYPERTENSION
     Route: 048
     Dates: start: 20040101
  5. FUROSEMIDE [Concomitant]
     Indication: FLUID RETENTION
     Route: 048
     Dates: start: 20040101
  6. SPIRONOLACTONE [Concomitant]
     Indication: FLUID RETENTION
     Route: 048
     Dates: start: 20040101

REACTIONS (6)
  - BONE PAIN [None]
  - CEREBRAL ISCHAEMIA [None]
  - COLITIS [None]
  - CYSTITIS [None]
  - DIARRHOEA HAEMORRHAGIC [None]
  - GASTROINTESTINAL TOXICITY [None]
